FAERS Safety Report 17184320 (Version 1)
Quarter: 2019Q4

REPORT INFORMATION
  Report Type: Spontaneous
  Country: US (occurrence: US)
  Receive Date: 20191219
  Receipt Date: 20191219
  Transmission Date: 20200122
  Serious: Yes (Hospitalization)
  Sender: FDA-Public Use
  Company Number: None

PATIENT
  Age: 73 Year
  Sex: Female
  Weight: 75 kg

DRUGS (11)
  1. OXYCODONE/APAP 10/325 1 TAB Q4H PRN [Concomitant]
  2. ESCITALOPRAM 10MG PO DAILY [Concomitant]
  3. DULOXETINE 30MG PO DAILY [Concomitant]
  4. TOPROL XL 100MG PO DAILY [Concomitant]
  5. ZENPEP 40,000/136000/218000 [Concomitant]
  6. PREMARIN VAG CREAM 0.5G VAGINALLY TWICE WEEKLY [Concomitant]
  7. ALPRAZOLAM 1 MG PO BID [Concomitant]
  8. TRANDOLAPRIL. [Suspect]
     Active Substance: TRANDOLAPRIL
     Indication: HYPERTENSION
     Route: 048
     Dates: start: 20180721, end: 20191215
  9. CLONIDINE 0.1 MG PO Q12H PRN [Concomitant]
  10. ATORVASATIN 80MG PO QHS [Concomitant]
  11. OXYCONTIN 10MG PO BID [Concomitant]

REACTIONS (2)
  - Throat tightness [None]
  - Dyspnoea [None]

NARRATIVE: CASE EVENT DATE: 20191215
